FAERS Safety Report 7746238-7 (Version None)
Quarter: 2011Q3

REPORT INFORMATION
  Report Type: 
  Country: None (occurrence: None)
  Receive Date: 20110913
  Receipt Date: 20110831
  Transmission Date: 20111222
  Serious: Yes (Life-Threatening, Hospitalization)
  Sender: FDA-Public Use
  Company Number: IL-ROCHE-800105

PATIENT
  Age: 27 Year
  Sex: Female

DRUGS (1)
  1. VEMURAFENIB [Suspect]
     Dosage: FORM : PILL
     Route: 048
     Dates: start: 20110802, end: 20110828

REACTIONS (1)
  - NEUTROPENIA [None]
